FAERS Safety Report 24378700 (Version 1)
Quarter: 2024Q3

REPORT INFORMATION
  Report Type: Spontaneous
  Country: ES (occurrence: ES)
  Receive Date: 20240930
  Receipt Date: 20240930
  Transmission Date: 20241017
  Serious: Yes (Congenital Anomaly)
  Sender: BIOGEN
  Company Number: ES-BIOGEN-2024BI01284075

PATIENT

DRUGS (1)
  1. TYSABRI [Suspect]
     Active Substance: NATALIZUMAB
     Indication: Maternal exposure timing unspecified
     Route: 050
     Dates: start: 202201

REACTIONS (2)
  - Trisomy 18 [Unknown]
  - Foetal exposure during pregnancy [Recovered/Resolved]
